FAERS Safety Report 10966523 (Version 3)
Quarter: 2015Q2

REPORT INFORMATION
  Report Type: Spontaneous
  Country: AU (occurrence: AU)
  Receive Date: 20150330
  Receipt Date: 20150505
  Transmission Date: 20150821
  Serious: Yes (Life-Threatening)
  Sender: FDA-Public Use
  Company Number: AU-GE HEALTHCARE MEDICAL DIAGNOSTICS-OMPQ-PR-1503S-0260

PATIENT
  Age: 66 Year
  Sex: Male

DRUGS (9)
  1. EXFORGE [Concomitant]
     Active Substance: AMLODIPINE BESYLATE\VALSARTAN
  2. PROGOUT [Concomitant]
     Active Substance: ALLOPURINOL
  3. IOSCAN [Concomitant]
  4. PANADOL [Concomitant]
     Active Substance: ACETAMINOPHEN
  5. OMNIPAQUE [Suspect]
     Active Substance: IOHEXOL
     Indication: DIAGNOSTIC PROCEDURE
  6. PHYSIOTENS [Concomitant]
     Active Substance: MOXONIDINE
  7. OMNIPAQUE [Suspect]
     Active Substance: IOHEXOL
     Indication: HEPATIC MASS
     Route: 042
     Dates: start: 20150319, end: 20150319
  8. CRESTOR [Concomitant]
     Active Substance: ROSUVASTATIN CALCIUM
  9. PLAVIX [Concomitant]
     Active Substance: CLOPIDOGREL BISULFATE

REACTIONS (7)
  - Headache [Recovered/Resolved]
  - Hypotension [Recovered/Resolved]
  - Pharyngeal oedema [Recovered/Resolved]
  - Neck pain [Recovered/Resolved]
  - Chest pain [Recovered/Resolved]
  - Anaphylactic reaction [Recovered/Resolved]
  - Dyspnoea [Recovered/Resolved]

NARRATIVE: CASE EVENT DATE: 20150319
